FAERS Safety Report 6648935-3 (Version None)
Quarter: 2010Q1

REPORT INFORMATION
  Report Type: 
  Country: None (occurrence: None)
  Receive Date: 20100324
  Receipt Date: 20100316
  Transmission Date: 20100710
  Serious: Yes (Hospitalization)
  Sender: FDA-Public Use
  Company Number: TR-ELI_LILLY_AND_COMPANY-TR201003004773

PATIENT
  Sex: Female

DRUGS (4)
  1. HUMULIN R [Suspect]
     Indication: DIABETES MELLITUS
     Dosage: 12 IU, EACH MORNING
     Route: 058
     Dates: start: 20100201
  2. HUMULIN R [Suspect]
     Dosage: 12 IU, OTHER
     Route: 058
     Dates: start: 20100201
  3. HUMULIN R [Suspect]
     Dosage: 18 IU, EACH EVENING
     Route: 058
     Dates: start: 20100201
  4. HUMULIN N [Suspect]
     Indication: DIABETES MELLITUS
     Dosage: 38 U, DAILY (1/D)
     Route: 058
     Dates: start: 20100315

REACTIONS (2)
  - BLOOD GLUCOSE ABNORMAL [None]
  - DRUG EXPOSURE DURING PREGNANCY [None]
